FAERS Safety Report 9120231 (Version 3)
Quarter: 2013Q2

REPORT INFORMATION
  Report Type: Report from Study
  Country: JP (occurrence: JP)
  Receive Date: 20130226
  Receipt Date: 20130403
  Transmission Date: 20140414
  Serious: Yes (Other)
  Sender: FDA-Public Use
  Company Number: JP-ASTELLAS-2013JP002268

PATIENT
  Age: 74 Year
  Sex: Male
  Weight: 53 kg

DRUGS (14)
  1. MIRABEGRON [Suspect]
     Indication: HYPERTONIC BLADDER
     Dosage: 50 MG, UID/QD
     Route: 048
     Dates: start: 20121206, end: 20121220
  2. VESICARE [Suspect]
     Indication: HYPERTONIC BLADDER
     Dosage: 5 MG, UNKNOWN/D
     Route: 048
     Dates: start: 20121220, end: 20130117
  3. FLIVAS [Concomitant]
     Indication: BENIGN PROSTATIC HYPERPLASIA
     Dosage: 50 MG, UNKNOWN/D
     Route: 048
     Dates: start: 20121206
  4. SYMMETREL [Concomitant]
     Indication: PARKINSON^S DISEASE
     Dosage: 150 MG, UNKNOWN/D
     Route: 048
  5. REQUIP [Concomitant]
     Indication: PARKINSON^S DISEASE
     Dosage: 3 MG, UNKNOWN/D
     Route: 048
  6. MAGNESIUM OXIDE [Concomitant]
     Indication: CONSTIPATION
     Dosage: 3 G, UNKNOWN/D
     Route: 048
  7. FP [Concomitant]
     Indication: PARKINSON^S DISEASE
     Dosage: 5 MG, UNKNOWN/D
     Route: 048
  8. BI-SIFROL [Concomitant]
     Indication: PARKINSON^S DISEASE
     Dosage: 0.25 MG, UNKNOWN/D
     Route: 048
  9. AVOLVE [Concomitant]
     Indication: BENIGN PROSTATIC HYPERPLASIA
     Dosage: 0.5 MG, UNKNOWN/D
     Route: 048
  10. ARICEPT [Concomitant]
     Indication: DEMENTIA ALZHEIMER^S TYPE
     Dosage: 10 MG, UNKNOWN/D
     Route: 048
  11. GLACTIV [Concomitant]
     Indication: DIABETES MELLITUS
     Dosage: 50 MG, UNKNOWN/D
     Route: 048
  12. NEODOPASTON [Concomitant]
     Indication: PARKINSON^S DISEASE
     Dosage: 400 MG, UNKNOWN/D
     Route: 048
  13. LOXONIN [Concomitant]
     Indication: SPINAL OSTEOARTHRITIS
     Dosage: 100 MG, UNKNOWN/D
     Route: 061
  14. LECICARBON                         /05510501/ [Concomitant]
     Indication: CONSTIPATION
     Dosage: 1 DF, UNKNOWN/D
     Route: 054

REACTIONS (3)
  - Drug ineffective [Unknown]
  - Residual urine volume increased [Recovering/Resolving]
  - Parkinson^s disease [Not Recovered/Not Resolved]
